FAERS Safety Report 25608501 (Version 5)
Quarter: 2025Q3

REPORT INFORMATION
  Report Type: Spontaneous
  Country: EU (occurrence: EU)
  Receive Date: 20250726
  Receipt Date: 20250922
  Transmission Date: 20251021
  Serious: Yes (Disabling, Other)
  Sender: AUROBINDO
  Company Number: EU-AUROBINDO-AUR-APL-2025-037626

PATIENT
  Age: 64 Year
  Sex: Female

DRUGS (5)
  1. BISOPROLOL [Suspect]
     Active Substance: BISOPROLOL
     Indication: Supraventricular tachycardia
     Route: 065
  2. INDAPAMIDE [Concomitant]
     Active Substance: INDAPAMIDE
     Indication: Supraventricular tachycardia
     Route: 065
  3. ATORVASTATIN [Concomitant]
     Active Substance: ATORVASTATIN
     Indication: Supraventricular tachycardia
     Route: 065
  4. PENTOXIFYLLINE [Concomitant]
     Active Substance: PENTOXIFYLLINE
     Indication: Product used for unknown indication
     Route: 065
  5. Lodipine [Concomitant]
     Indication: Product used for unknown indication
     Route: 065

REACTIONS (13)
  - Raynaud^s phenomenon [Recovered/Resolved]
  - Skin necrosis [Recovering/Resolving]
  - Pain in extremity [Recovering/Resolving]
  - Paraesthesia [Recovering/Resolving]
  - Oedema peripheral [Recovering/Resolving]
  - Pallor [Recovering/Resolving]
  - Cyanosis [Recovering/Resolving]
  - Dry skin [Recovering/Resolving]
  - Condition aggravated [Recovering/Resolving]
  - Carpal tunnel syndrome [Recovering/Resolving]
  - Arthralgia [Recovering/Resolving]
  - Skin ulcer [Recovering/Resolving]
  - Erythema [Recovering/Resolving]
